FAERS Safety Report 8319841-3 (Version None)
Quarter: 2012Q2

REPORT INFORMATION
  Report Type: 
  Country: None (occurrence: None)
  Receive Date: 20120427
  Receipt Date: 20120425
  Transmission Date: 20120825
  Serious: No
  Sender: FDA-Public Use
  Company Number: US-PFIZER INC-2012103627

PATIENT
  Sex: Male
  Weight: 100 kg

DRUGS (3)
  1. CHANTIX [Suspect]
     Indication: SMOKING CESSATION THERAPY
     Dosage: UNK
     Route: 048
  2. CRESTOR [Concomitant]
     Indication: BLOOD CHOLESTEROL INCREASED
     Dosage: 20 MG; DAILY
  3. CHANTIX [Suspect]
     Dosage: 0.5 MG; DAILY
     Route: 048
     Dates: start: 20120422

REACTIONS (1)
  - CONSTIPATION [None]
